FAERS Safety Report 5077717-1 (Version None)
Quarter: 2006Q3

REPORT INFORMATION
  Report Type: 
  Country: None (occurrence: None)
  Receive Date: 20060810
  Receipt Date: 20060609
  Transmission Date: 20061208
  Serious: Yes (Hospitalization)
  Sender: FDA-Public Use
  Company Number: PHEH2006US07632

PATIENT
  Age: 95 Year
  Sex: Female

DRUGS (7)
  1. ENABLEX [Suspect]
     Dosage: 15 MG, QD
     Dates: start: 20060315, end: 20060508
  2. ZOLOFT [Concomitant]
  3. LISINOPRIL [Concomitant]
  4. METOPROLOL TARTRATE [Concomitant]
  5. FUROSEMIDE [Concomitant]
  6. ESTINYL [Concomitant]
  7. DOCUSATE [Concomitant]

REACTIONS (7)
  - ABDOMINAL DISTENSION [None]
  - ABDOMINAL PAIN [None]
  - CONFUSIONAL STATE [None]
  - MENTAL IMPAIRMENT [None]
  - OXYGEN SATURATION DECREASED [None]
  - SMALL INTESTINAL OBSTRUCTION [None]
  - VOMITING [None]
